FAERS Safety Report 7652345-X (Version None)
Quarter: 2011Q3

REPORT INFORMATION
  Report Type: 
  Country: None (occurrence: None)
  Receive Date: 20110722
  Receipt Date: 20110216
  Transmission Date: 20111222
  Serious: Yes (Hospitalization)
  Sender: FDA-Public Use
  Company Number: UTC-005266

PATIENT
  Age: 60 Year
  Sex: Female

DRUGS (3)
  1. REVATIO [Concomitant]
  2. REMODULIN [Suspect]
     Indication: PULMONARY ARTERIAL HYPERTENSION
     Dosage: 31.68 UG/KG (0.022 UG/KG, 1 IN MIN), SUBCUTANEOUS
     Route: 058
     Dates: start: 20100129
  3. LETAIRIS [Concomitant]

REACTIONS (1)
  - CELLULITIS [None]
